FAERS Safety Report 5458428-7 (Version None)
Quarter: 2007Q3

REPORT INFORMATION
  Report Type: 
  Country: None (occurrence: None)
  Receive Date: 20070919
  Receipt Date: 20070323
  Transmission Date: 20080115
  Serious: No
  Sender: FDA-Public Use
  Company Number: US-ASTRAZENECA-2007UW05954

PATIENT
  Age: 26 Year
  Sex: Female
  Weight: 79.8 kg

DRUGS (8)
  1. SEROQUEL [Suspect]
     Indication: SLEEP DISORDER THERAPY
     Route: 048
     Dates: start: 20020101
  2. SEROQUEL [Suspect]
     Indication: BIPOLAR DISORDER
     Route: 048
     Dates: start: 20020101
  3. SEROQUEL [Suspect]
     Route: 048
  4. SEROQUEL [Suspect]
     Route: 048
  5. ABILIFY [Concomitant]
  6. PROZAC [Concomitant]
  7. XANAX [Concomitant]
  8. LAXATIVE OTC [Concomitant]

REACTIONS (6)
  - CARDIAC DISORDER [None]
  - DRUG ABUSE [None]
  - DRUG EXPOSURE DURING PREGNANCY [None]
  - GASTROINTESTINAL MOTILITY DISORDER [None]
  - HEART RATE INCREASED [None]
  - THERAPEUTIC RESPONSE DECREASED [None]
